FAERS Safety Report 13859982 (Version 2)
Quarter: 2018Q3

REPORT INFORMATION
  Report Type: Report from Study
  Country: US (occurrence: US)
  Receive Date: 20170811
  Receipt Date: 20180920
  Transmission Date: 20181010
  Serious: Yes (Hospitalization)
  Sender: FDA-Public Use
  Company Number: US-JNJFOC-20170625752

PATIENT
  Sex: Male

DRUGS (30)
  1. FLOMAX [Concomitant]
     Active Substance: TAMSULOSIN HYDROCHLORIDE
  2. TRADJENTA [Concomitant]
     Active Substance: LINAGLIPTIN
  3. VITAMIN B12 [Concomitant]
     Active Substance: CYANOCOBALAMIN
  4. ISOSORBIDE MONONITRATE. [Concomitant]
     Active Substance: ISOSORBIDE MONONITRATE
  5. IMBRUVICA [Suspect]
     Active Substance: IBRUTINIB
     Indication: CHRONIC LYMPHOCYTIC LEUKAEMIA
     Dosage: 420 MG, QD
     Route: 048
     Dates: start: 20151107
  6. IMBRUVICA [Suspect]
     Active Substance: IBRUTINIB
     Indication: ACUTE LYMPHOCYTIC LEUKAEMIA RECURRENT
     Dosage: 420 MG, QD
     Route: 048
     Dates: start: 20160831
  7. CIPROFLOXACIN. [Suspect]
     Active Substance: CIPROFLOXACIN
     Indication: PRODUCT USED FOR UNKNOWN INDICATION
     Dosage: UNK
     Route: 065
     Dates: start: 2017
  8. GLIPIZIDE. [Concomitant]
     Active Substance: GLIPIZIDE
  9. LANTUS [Concomitant]
     Active Substance: INSULIN GLARGINE
  10. TOCOPHEROL [Concomitant]
     Active Substance: TOCOPHEROL
  11. IMBRUVICA [Suspect]
     Active Substance: IBRUTINIB
     Indication: ACUTE LYMPHOCYTIC LEUKAEMIA RECURRENT
     Dosage: 420 MG, QD
     Route: 048
     Dates: start: 20151107
  12. XANAX [Concomitant]
     Active Substance: ALPRAZOLAM
  13. VITAMIN C [Concomitant]
     Active Substance: ASCORBIC ACID
  14. SULFAMETHOXAZOLE AND TRIMETHOPRIM [Concomitant]
     Active Substance: SULFAMETHOXAZOLE\TRIMETHOPRIM
  15. COLACE [Concomitant]
     Active Substance: DOCUSATE SODIUM
  16. CARAFATE [Concomitant]
     Active Substance: SUCRALFATE
  17. BUSPIRONE [Concomitant]
     Active Substance: BUSPIRONE HYDROCHLORIDE
  18. CLOPIDOGREL BISULFATE. [Concomitant]
     Active Substance: CLOPIDOGREL BISULFATE
  19. PHENAZOPYRIDINE. [Concomitant]
     Active Substance: PHENAZOPYRIDINE
  20. SIMVASTATIN. [Concomitant]
     Active Substance: SIMVASTATIN
  21. NITROSTAT [Concomitant]
     Active Substance: NITROGLYCERIN
  22. LASIX [Concomitant]
     Active Substance: FUROSEMIDE
  23. FINASTERIDE. [Concomitant]
     Active Substance: FINASTERIDE
  24. HYDROCODONE BITARTRATE W/PARACETAMOL [Concomitant]
     Active Substance: ACETAMINOPHEN\HYDROCODONE BITARTRATE
  25. OMEPRAZOLE. [Concomitant]
     Active Substance: OMEPRAZOLE
  26. IMBRUVICA [Suspect]
     Active Substance: IBRUTINIB
     Indication: CHRONIC LYMPHOCYTIC LEUKAEMIA
     Dosage: 420 MG, QD
     Route: 048
     Dates: start: 20160831
  27. IRON [Concomitant]
     Active Substance: IRON
  28. FERROUS SULFATE. [Concomitant]
     Active Substance: FERROUS SULFATE
  29. FEXOFENADINE HCL [Concomitant]
     Active Substance: FEXOFENADINE HYDROCHLORIDE
  30. METOPROLOL SUCCINATE. [Concomitant]
     Active Substance: METOPROLOL SUCCINATE

REACTIONS (4)
  - Thrombosis [Unknown]
  - Haemorrhage [Unknown]
  - Labelled drug-drug interaction medication error [Unknown]
  - Urinary tract infection [Unknown]
